FAERS Safety Report 11808120 (Version 5)
Quarter: 2017Q4

REPORT INFORMATION
  Report Type: Spontaneous
  Country: US (occurrence: US)
  Receive Date: 20151207
  Receipt Date: 20171220
  Transmission Date: 20180320
  Serious: No
  Sender: FDA-Public Use
  Company Number: US-PFIZER INC-2015409083

PATIENT
  Age: 64 Year
  Sex: Male
  Weight: 97.52 kg

DRUGS (1)
  1. VIAGRA [Suspect]
     Active Substance: SILDENAFIL CITRATE
     Indication: ERECTILE DYSFUNCTION
     Dosage: 100 MG, UNK
     Route: 048
     Dates: end: 201611

REACTIONS (3)
  - Herpes zoster [Unknown]
  - Body height decreased [Unknown]
  - Headache [Unknown]

NARRATIVE: CASE EVENT DATE: 201609
